FAERS Safety Report 17955749 (Version 1)
Quarter: 2020Q2

REPORT INFORMATION
  Report Type: Spontaneous
  Country: US (occurrence: US)
  Receive Date: 20200626
  Receipt Date: 20200626
  Transmission Date: 20200714
  Serious: No
  Sender: FDA-Public Use
  Company Number: None

PATIENT
  Age: 54 Year
  Sex: Female
  Weight: 50 kg

DRUGS (13)
  1. CAPECITABINE. [Suspect]
     Active Substance: CAPECITABINE
     Indication: BREAST CANCER
     Route: 048
     Dates: start: 20200618
  2. COLACE [Concomitant]
     Active Substance: DOCUSATE SODIUM
  3. OSCAL 500/200 [Concomitant]
  4. CARAFATE [Concomitant]
     Active Substance: SUCRALFATE
  5. PRILOSEC [Concomitant]
     Active Substance: OMEPRAZOLE MAGNESIUM
  6. MULTIVITAMIN [Concomitant]
     Active Substance: VITAMINS
  7. SENOKOT [Concomitant]
     Active Substance: SENNOSIDES
  8. VALIUM [Concomitant]
     Active Substance: DIAZEPAM
  9. CICLOPIROX. [Concomitant]
     Active Substance: CICLOPIROX
  10. ONDANSETRON [Concomitant]
     Active Substance: ONDANSETRON
  11. OXYCODONE [Concomitant]
     Active Substance: OXYCODONE
  12. SYNTHROID [Concomitant]
     Active Substance: LEVOTHYROXINE SODIUM
  13. GAS-X [Concomitant]
     Active Substance: DIMETHICONE

REACTIONS (2)
  - Wrong schedule [None]
  - Incorrect dose administered [None]

NARRATIVE: CASE EVENT DATE: 20200626
